FAERS Safety Report 7677759-3 (Version None)
Quarter: 2011Q3

REPORT INFORMATION
  Report Type: 
  Country: None (occurrence: None)
  Receive Date: 20110808
  Receipt Date: 20110727
  Transmission Date: 20111222
  Serious: Yes (Hospitalization)
  Sender: FDA-Public Use
  Company Number: 983987

PATIENT
  Age: 76 Year
  Sex: Male
  Weight: 48 kg

DRUGS (3)
  1. LEUCOVORIN CALCIUM [Suspect]
     Indication: COLON CANCER
  2. OXALIPLATIN [Suspect]
     Indication: COLON CANCER
  3. FLUOROURACIL [Suspect]
     Indication: COLON CANCER

REACTIONS (10)
  - DECREASED APPETITE [None]
  - REFUSAL OF TREATMENT BY PATIENT [None]
  - INTERSTITIAL LUNG DISEASE [None]
  - BODY TEMPERATURE DECREASED [None]
  - BLOOD CREATININE INCREASED [None]
  - BLOOD LACTATE DEHYDROGENASE INCREASED [None]
  - HAEMOGLOBIN DECREASED [None]
  - ASTHENIA [None]
  - BLOOD ALBUMIN DECREASED [None]
  - NEUTROPHIL PERCENTAGE DECREASED [None]
